FAERS Safety Report 8403368 (Version 3)
Quarter: 2013Q3

REPORT INFORMATION
  Report Type: Spontaneous
  Country: US (occurrence: US)
  Receive Date: 20120213
  Receipt Date: 20130927
  Transmission Date: 20140515
  Serious: Yes (Other)
  Sender: FDA-Public Use
  Company Number: US-ROCHE-790135

PATIENT
  Age: 28 Year
  Sex: Male
  Weight: 86.26 kg

DRUGS (1)
  1. ACCUTANE [Suspect]
     Indication: ACNE
     Route: 065
     Dates: start: 19960611, end: 199612

REACTIONS (9)
  - Colitis ulcerative [Unknown]
  - Emotional distress [Unknown]
  - Inflammatory bowel disease [Unknown]
  - Rectal polyp [Unknown]
  - Haemorrhoids [Unknown]
  - Irritable bowel syndrome [Unknown]
  - Skin fragility [Unknown]
  - Pruritus [Unknown]
  - Lip dry [Unknown]
